FAERS Safety Report 4466276-X (Version None)
Quarter: 2004Q3

REPORT INFORMATION
  Report Type: 
  Country: None (occurrence: None)
  Receive Date: 20040930
  Receipt Date: 20040921
  Transmission Date: 20050211
  Serious: Yes (Death, Hospitalization)
  Sender: FDA-Public Use
  Company Number: THYR-10187

PATIENT
  Age: 54 Year
  Sex: Male

DRUGS (1)
  1. THYROGEN [Suspect]
     Indication: METASTASIS
     Dosage: 0.9 MG QD IM
     Route: 030
     Dates: start: 20021229, end: 20021229

REACTIONS (5)
  - ANTI-THYROID ANTIBODY POSITIVE [None]
  - LYMPHADENOPATHY MEDIASTINAL [None]
  - MALIGNANT NEOPLASM PROGRESSION [None]
  - METASTASES TO LUNG [None]
  - THYROID GLAND CANCER [None]
